FAERS Safety Report 23162708 (Version 2)
Quarter: 2023Q4

REPORT INFORMATION
  Report Type: Report from Study
  Country: US (occurrence: US)
  Receive Date: 20231109
  Receipt Date: 20231115
  Transmission Date: 20240110
  Serious: Yes (Other)
  Sender: FDA-Public Use
  Company Number: US-ABBVIE-5486995

PATIENT
  Sex: Female

DRUGS (1)
  1. SKYRIZI [Suspect]
     Active Substance: RISANKIZUMAB-RZAA
     Indication: Psoriasis
     Route: 058
     Dates: start: 20230315

REACTIONS (3)
  - Seizure [Recovering/Resolving]
  - Tongue injury [Unknown]
  - Foaming at mouth [Recovering/Resolving]

NARRATIVE: CASE EVENT DATE: 20230101
